FAERS Safety Report 8208490-3 (Version None)
Quarter: 2012Q1

REPORT INFORMATION
  Report Type: 
  Country: None (occurrence: None)
  Receive Date: 20120314
  Receipt Date: 20120212
  Transmission Date: 20120608
  Serious: Yes (Hospitalization)
  Sender: FDA-Public Use
  Company Number: US-ROCHE-1019553

PATIENT
  Sex: Female

DRUGS (14)
  1. METHOTREXATE SODIUM [Concomitant]
     Dosage: 25MG/ML.SOLUTION 0.6ML
  2. CALCIUM [Concomitant]
     Dosage: AFTER MEAL, 1 TABLET
  3. SOLU-MEDROL [Concomitant]
  4. RANITIDINE [Concomitant]
     Dosage: 1 TAB TWICE A DAY
  5. ZYRTEC [Concomitant]
     Indication: HYPERSENSITIVITY
     Dosage: 1 TAB ONCE A DAY
  6. ASCORBIC ACID [Concomitant]
  7. VITAMIN D [Concomitant]
     Dosage: 2000 UNIT,AS DIRECTED
  8. RITUXAN [Suspect]
     Indication: RHEUMATOID ARTHRITIS
     Route: 042
     Dates: start: 20080110
  9. FISH OIL [Concomitant]
     Dosage: WITH A MEAL
  10. FOLIC ACID [Concomitant]
  11. OMEPRAZOLE [Concomitant]
     Dosage: DELAYED RELEASE 1 CAPSULE ONCE A DAY
  12. VERAMYST [Concomitant]
     Dosage: 2 PUFFS IN EACH NOSTRIL QD
  13. LOVAZA [Concomitant]
     Dosage: WITH A MEAL
  14. VITAMIN B COMPLEX CAP [Concomitant]
     Dosage: AS DIRECTED

REACTIONS (2)
  - HEADACHE [None]
  - MENINGIOMA [None]
